FAERS Safety Report 4835669-0 (Version None)
Quarter: 2005Q4

REPORT INFORMATION
  Report Type: 
  Country: None (occurrence: None)
  Receive Date: 20051123
  Receipt Date: 20040326
  Transmission Date: 20060501
  Serious: Yes (Other)
  Sender: FDA-Public Use
  Company Number: US-BRISTOL-MYERS SQUIBB COMPANY-12543641

PATIENT
  Age: 64 Year
  Sex: Male
  Weight: 81 kg

DRUGS (1)
  1. AMPHOTERICIN B [Suspect]
     Indication: COCCIDIOIDOMYCOSIS
     Route: 041
     Dates: start: 20040101

REACTIONS (1)
  - BLOOD PRESSURE DECREASED [None]
